FAERS Safety Report 9801966 (Version 2)
Quarter: 2014Q1

REPORT INFORMATION
  Report Type: Spontaneous
  Country: US (occurrence: US)
  Receive Date: 20140107
  Receipt Date: 20140107
  Transmission Date: 20141002
  Serious: Yes (Hospitalization)
  Sender: FDA-Public Use
  Company Number: US-B.I. PHARMACEUTICALS,INC./RIDGEFIELD-2013-BI-21825BP

PATIENT
  Sex: Female
  Weight: 73.94 kg

DRUGS (9)
  1. PRADAXA [Suspect]
     Indication: ATRIAL FIBRILLATION
     Dates: start: 20120401, end: 20120705
  2. BENZONATATE [Concomitant]
     Dosage: 300 MG
     Route: 048
  3. DILTIAZEM [Concomitant]
     Dosage: 120 MG
     Route: 048
  4. ERLOTINIB [Concomitant]
     Dosage: 100 MG
     Route: 048
  5. HYDROCHLOROTHIAZIDE [Concomitant]
     Dosage: 25 MG
     Route: 048
  6. TYLENOL [Concomitant]
     Route: 048
  7. CALCIUM CARBONATE/VITAMIN D3 [Concomitant]
     Route: 048
  8. HYDROCODONE-ACETAMINOPHEN [Concomitant]
     Route: 048
  9. PAXIL [Concomitant]
     Route: 048

REACTIONS (2)
  - Lower gastrointestinal haemorrhage [Recovered/Resolved]
  - Haemorrhagic anaemia [Unknown]
